FAERS Safety Report 8978358 (Version 1)
Quarter: 2012Q4

REPORT INFORMATION
  Report Type: Spontaneous
  Country: US (occurrence: None)
  Receive Date: 20121218
  Receipt Date: 20121218
  Transmission Date: 20130627
  Serious: No
  Sender: FDA-Public Use
  Company Number: None

PATIENT
  Age: 69 Year
  Sex: Female
  Weight: 80.74 kg

DRUGS (1)
  1. LUNESTA 2MG [Suspect]
     Indication: INSOMNIA
     Dosage: 1 at night

REACTIONS (3)
  - Poor quality sleep [None]
  - Drug withdrawal syndrome [None]
  - Treatment failure [None]
